FAERS Safety Report 7319924-0 (Version None)
Quarter: 2011Q1

REPORT INFORMATION
  Report Type: 
  Country: None (occurrence: None)
  Receive Date: 20110228
  Receipt Date: 20101209
  Transmission Date: 20110831
  Serious: No
  Sender: FDA-Public Use
  Company Number: A0898888A

PATIENT
  Sex: Female

DRUGS (1)
  1. LAMICTAL [Suspect]
     Indication: ATTENTION DEFICIT/HYPERACTIVITY DISORDER
     Dosage: 10MG PER DAY
     Route: 048
     Dates: start: 20101129, end: 20101208

REACTIONS (6)
  - OEDEMA MOUTH [None]
  - RASH [None]
  - PRURITUS [None]
  - EYE SWELLING [None]
  - SKIN LESION [None]
  - URTICARIA [None]
